FAERS Safety Report 7424011-7 (Version None)
Quarter: 2011Q2

REPORT INFORMATION
  Report Type: 
  Country: None (occurrence: None)
  Receive Date: 20110411
  Receipt Date: 20110325
  Transmission Date: 20111010
  Serious: Yes (Other)
  Sender: FDA-Public Use
  Company Number: 2011040003

PATIENT
  Sex: Female

DRUGS (1)
  1. ALLERGODIL AKUT AUGENTROPFEN (AZELASTINE HCL) [Suspect]
     Dosage: OCULAR USE
     Dates: start: 20110322, end: 20110322

REACTIONS (3)
  - THROAT TIGHTNESS [None]
  - DYSPNOEA [None]
  - PYREXIA [None]
